FAERS Safety Report 4912278-6 (Version None)
Quarter: 2006Q1

REPORT INFORMATION
  Report Type: 
  Country: None (occurrence: None)
  Receive Date: 20060215
  Receipt Date: 20051213
  Transmission Date: 20060701
  Serious: No
  Sender: FDA-Public Use
  Company Number: US-GLAXOSMITHKLINE-A0585718A

PATIENT
  Age: 55 Year
  Sex: Female

DRUGS (7)
  1. VALTREX [Suspect]
     Dosage: 500MG PER DAY
     Route: 048
     Dates: start: 20050315
  2. ALDACTONE [Concomitant]
  3. SUDAFED 12 HOUR [Concomitant]
  4. ERYTHROMYCIN [Concomitant]
  5. PHENTERMINE [Concomitant]
  6. OGEN [Concomitant]
  7. VITAMINS [Concomitant]

REACTIONS (3)
  - ERYTHEMA [None]
  - LETHARGY [None]
  - SKIN DISCOLOURATION [None]
